FAERS Safety Report 6854420-6 (Version None)
Quarter: 2010Q3

REPORT INFORMATION
  Report Type: 
  Country: None (occurrence: None)
  Receive Date: 20100717
  Receipt Date: 20080108
  Transmission Date: 20110219
  Serious: No
  Sender: FDA-Public Use
  Company Number: US-PFIZER INC-2008002038

PATIENT
  Sex: Female
  Weight: 65.9 kg

DRUGS (1)
  1. CHANTIX [Suspect]
     Indication: SMOKING CESSATION THERAPY
     Dates: start: 20071230

REACTIONS (8)
  - ABNORMAL DREAMS [None]
  - ANGER [None]
  - CRYING [None]
  - FEELING ABNORMAL [None]
  - MALAISE [None]
  - NERVOUSNESS [None]
  - STRESS [None]
  - WITHDRAWAL SYNDROME [None]
